FAERS Safety Report 7194206-9 (Version None)
Quarter: 2010Q4

REPORT INFORMATION
  Report Type: 
  Country: None (occurrence: None)
  Receive Date: 20101223
  Receipt Date: 20101216
  Transmission Date: 20110411
  Serious: Yes (Death)
  Sender: FDA-Public Use
  Company Number: AU-PURDUE-USA-2010-0043459

PATIENT
  Age: 26 Year
  Sex: Male

DRUGS (3)
  1. OXYCODONE HCL [Suspect]
     Indication: PRODUCT USED FOR UNKNOWN INDICATION
  2. TRAMADOL (SIMILAR TO NDA 21-745) [Suspect]
     Indication: PRODUCT USED FOR UNKNOWN INDICATION
  3. FLUOXETINE [Suspect]
     Indication: PRODUCT USED FOR UNKNOWN INDICATION

REACTIONS (3)
  - DRUG PRESCRIBING ERROR [None]
  - DRUG TOXICITY [None]
  - PULMONARY OEDEMA [None]
